FAERS Safety Report 5819155-7 (Version None)
Quarter: 2008Q3

REPORT INFORMATION
  Report Type: 
  Country: None (occurrence: None)
  Receive Date: 20080723
  Receipt Date: 20080715
  Transmission Date: 20090109
  Serious: Yes (Hospitalization)
  Sender: FDA-Public Use
  Company Number: A0736110A

PATIENT
  Age: 65 Year
  Sex: Female
  Weight: 70.7 kg

DRUGS (8)
  1. TOPOTECAN [Suspect]
     Indication: OVARIAN CANCER RECURRENT
     Dosage: 4MGM2 CYCLIC
     Route: 042
     Dates: start: 20080423
  2. BEVACIZUMAB [Suspect]
     Indication: OVARIAN CANCER RECURRENT
     Dosage: 10MGK CYCLIC
     Route: 042
     Dates: start: 20080423
  3. FEXOFENADINE [Concomitant]
     Dosage: 60MG PER DAY
     Route: 048
  4. METHYLCELLULOSE [Concomitant]
     Dosage: 2TAB PER DAY
  5. EQUITAM [Concomitant]
     Dosage: .5MG AS REQUIRED
  6. OMEPRAZOLE [Concomitant]
     Dosage: 20MG PER DAY
     Route: 048
  7. ESOMEPRAZOLE MAGNESIUM [Concomitant]
     Route: 042
  8. TYLENOL PM [Concomitant]

REACTIONS (8)
  - ABDOMINAL PAIN [None]
  - ANAEMIA [None]
  - DIARRHOEA [None]
  - DISEASE PROGRESSION [None]
  - GASTROOESOPHAGEAL REFLUX DISEASE [None]
  - HAEMATEMESIS [None]
  - NAUSEA [None]
  - UPPER GASTROINTESTINAL HAEMORRHAGE [None]
